FAERS Safety Report 15255279 (Version 1)
Quarter: 2018Q3

REPORT INFORMATION
  Report Type: Spontaneous
  Country: US (occurrence: US)
  Receive Date: 20180717
  Receipt Date: 20180717
  Transmission Date: 20181010
  Serious: No
  Sender: FDA-Public Use
  Company Number: None

PATIENT
  Sex: Female

DRUGS (1)
  1. BEXAROTENE 75MG [Suspect]
     Active Substance: BEXAROTENE
     Route: 048
     Dates: start: 20171107, end: 20180511

REACTIONS (1)
  - Skin reaction [None]
